FAERS Safety Report 4484871-9 (Version None)
Quarter: 2004Q3

REPORT INFORMATION
  Report Type: 
  Country: None (occurrence: None)
  Receive Date: 20040921
  Receipt Date: 20030922
  Transmission Date: 20050211
  Serious: Yes (Hospitalization)
  Sender: FDA-Public Use
  Company Number: 163-20785-03090579 (0)

PATIENT
  Age: 71 Year
  Sex: Male

DRUGS (31)
  1. THALOMID [Suspect]
     Indication: METASTATIC MALIGNANT MELANOMA
     Dosage: SEE IMAGE
     Route: 048
     Dates: start: 20030201, end: 20030101
  2. THALOMID [Suspect]
     Indication: METASTATIC MALIGNANT MELANOMA
     Dosage: SEE IMAGE
     Route: 048
     Dates: start: 20030101, end: 20040708
  3. THALOMID [Suspect]
  4. THALOMID [Suspect]
  5. BETA BLOCKER (BETA BLOCKING AGENTS) [Suspect]
  6. ATENOLOL [Concomitant]
  7. ACETYLSALICYLIC ACID SRT [Concomitant]
  8. COUMADIN (WAFARIN SODIUM) [Concomitant]
  9. RABEPRAZOLE SODIUM [Concomitant]
  10. OXYBUTYNIN [Concomitant]
  11. LACTULOSE [Concomitant]
  12. ALUMINUM HYDROXIDE AND MAGNESIUM TRISILICATE [Concomitant]
  13. NITROGLYCERIN ^AL^ (GLYCERIN TRINITRATE) [Concomitant]
  14. BACITRACIN [Concomitant]
  15. TAMBACOR (FLECAINIDE ACETATE) [Concomitant]
  16. METRONIDAZOLE [Concomitant]
  17. RANITIDINE [Concomitant]
  18. PROCHLORPERAZINE MALEATE [Concomitant]
  19. RABEPRAZOLE SODIUM [Concomitant]
  20. CYCLOBENZAPINE [Concomitant]
  21. IBUPROFEN [Concomitant]
  22. NAPROXEN [Concomitant]
  23. PIROXICAM [Concomitant]
  24. POLYMIXIN (SALBUTAMOL) [Concomitant]
  25. FLUOCINONIDE [Concomitant]
  26. LIDOCAINE VISCOUS (LIDOCAINE HYDROCHLORIDE) [Concomitant]
  27. AQUA PHILLIC OINTMENT [Concomitant]
  28. SENNOSIDES [Concomitant]
  29. AC NEOMYICONE [Concomitant]
  30. TEMOZOLOMIDE (TEMOZOLOMIDE) [Concomitant]
  31. ISORDIL [Concomitant]

REACTIONS (17)
  - BRADYCARDIA [None]
  - CHEST PAIN [None]
  - CONSTIPATION [None]
  - DEHYDRATION [None]
  - DIARRHOEA [None]
  - DIFFICULTY IN WALKING [None]
  - DISEASE PROGRESSION [None]
  - DRY MOUTH [None]
  - DYSPNOEA [None]
  - HYPOTENSION [None]
  - METASTASES TO CENTRAL NERVOUS SYSTEM [None]
  - METASTASES TO LUNG [None]
  - NAUSEA [None]
  - NEUROPATHY [None]
  - OEDEMA [None]
  - PARAESTHESIA [None]
  - VOMITING [None]
